FAERS Safety Report 6645018-3 (Version None)
Quarter: 2010Q1

REPORT INFORMATION
  Report Type: 
  Country: None (occurrence: None)
  Receive Date: 20100322
  Receipt Date: 20100315
  Transmission Date: 20100710
  Serious: Yes (Hospitalization)
  Sender: FDA-Public Use
  Company Number: PHHO2010ES04194

PATIENT
  Sex: Male
  Weight: 95 kg

DRUGS (4)
  1. ZOLEDRONATE T29581+SOLINJ+BM [Suspect]
     Dosage: 4 MG, UNK
     Route: 042
     Dates: start: 20080808, end: 20090709
  2. TAXOTERE [Suspect]
     Indication: NON-SMALL CELL LUNG CANCER
     Dosage: 75 MG/M2, UNK
     Route: 042
     Dates: start: 20090709, end: 20090709
  3. VITAMIN D [Concomitant]
  4. CALCIUM [Concomitant]

REACTIONS (5)
  - DIARRHOEA [None]
  - ENTEROCOLITIS [None]
  - HYPERGLYCAEMIA [None]
  - NEUTROPENIA [None]
  - RENAL FAILURE [None]
